FAERS Safety Report 20722059 (Version 1)
Quarter: 2022Q2

REPORT INFORMATION
  Report Type: Spontaneous
  Country: US (occurrence: None)
  Receive Date: 20220418
  Receipt Date: 20220418
  Transmission Date: 20220721
  Serious: Yes (Hospitalization)
  Sender: FDA-Public Use
  Company Number: None

PATIENT
  Age: 68 Year
  Sex: Female

DRUGS (3)
  1. ONPATTRO [Suspect]
     Active Substance: PATISIRAN SODIUM
     Indication: Familial amyloidosis
     Dosage: OTHER ROUTE : INTRAVENOUS;?
     Route: 042
     Dates: start: 20220414, end: 20220414
  2. VYNDAMAX [Concomitant]
  3. LASIX [Concomitant]

REACTIONS (7)
  - Back pain [None]
  - Neck pain [None]
  - Headache [None]
  - Chest pain [None]
  - Electrocardiogram abnormal [None]
  - Cerebrovascular accident [None]
  - Infusion related reaction [None]

NARRATIVE: CASE EVENT DATE: 20220414
